FAERS Safety Report 23900236 (Version 2)
Quarter: 2024Q2

REPORT INFORMATION
  Report Type: Spontaneous
  Country: PT (occurrence: PT)
  Receive Date: 20240526
  Receipt Date: 20240605
  Transmission Date: 20240716
  Serious: Yes (Life-Threatening)
  Sender: FDA-Public Use
  Company Number: PT-BAUSCHBL-2024BNL027332

PATIENT
  Age: 41 Year
  Sex: Female

DRUGS (10)
  1. DEXAMETHASONE [Suspect]
     Active Substance: DEXAMETHASONE
     Indication: Acquired immunodeficiency syndrome
     Route: 065
  2. DEXAMETHASONE [Suspect]
     Active Substance: DEXAMETHASONE
     Indication: Encephalitis cytomegalovirus
  3. DEXAMETHASONE [Suspect]
     Active Substance: DEXAMETHASONE
     Indication: Disseminated tuberculosis
  4. DEXAMETHASONE [Suspect]
     Active Substance: DEXAMETHASONE
     Indication: Oesophageal candidiasis
  5. GANCICLOVIR [Suspect]
     Active Substance: GANCICLOVIR
     Indication: Acquired immunodeficiency syndrome
     Route: 065
  6. GANCICLOVIR [Suspect]
     Active Substance: GANCICLOVIR
     Indication: Encephalitis cytomegalovirus
  7. GANCICLOVIR [Suspect]
     Active Substance: GANCICLOVIR
     Indication: Disseminated tuberculosis
  8. GANCICLOVIR [Suspect]
     Active Substance: GANCICLOVIR
     Indication: Oesophageal candidiasis
  9. FLUCONAZOLE [Suspect]
     Active Substance: FLUCONAZOLE
     Indication: Acquired immunodeficiency syndrome
     Route: 065
  10. SULFAMETHOXAZOLE\TRIMETHOPRIM [Suspect]
     Active Substance: SULFAMETHOXAZOLE\TRIMETHOPRIM
     Indication: Acquired immunodeficiency syndrome
     Route: 065

REACTIONS (1)
  - Therapy non-responder [Unknown]
